FAERS Safety Report 13561448 (Version 2)
Quarter: 2017Q2

REPORT INFORMATION
  Report Type: Spontaneous
  Country: TH (occurrence: TH)
  Receive Date: 20170518
  Receipt Date: 20170622
  Transmission Date: 20170830
  Serious: Yes (Other)
  Sender: FDA-Public Use
  Company Number: PHHY2017TH066055

PATIENT
  Age: 51 Year
  Sex: Male

DRUGS (6)
  1. DIAMOX SEQUELS [Suspect]
     Active Substance: ACETAZOLAMIDE
     Indication: GLAUCOMATOCYCLITIC CRISES
     Dosage: 3 DF, QD
     Route: 061
  2. INF-OPH [Suspect]
     Active Substance: PREDNISOLONE
     Indication: GLAUCOMATOCYCLITIC CRISES
     Dosage: UNK UNK, Q2H (LE) (1 TO 2 DROPS FOUR TO 6 TIMES PER DAY)
     Route: 061
  3. TIMOLOL. [Suspect]
     Active Substance: TIMOLOL
     Indication: GLAUCOMATOCYCLITIC CRISES
     Dosage: UNK UNK, BID (LE)
     Route: 061
  4. DIAMOX SEQUELS [Suspect]
     Active Substance: ACETAZOLAMIDE
     Dosage: 4 DF, QD
     Route: 065
  5. BRINZOLAMIDE [Suspect]
     Active Substance: BRINZOLAMIDE
     Indication: OPEN ANGLE GLAUCOMA
     Dosage: UNK UNK, TID (LE)
     Route: 061
     Dates: start: 20170309
  6. BRIMONIDINE [Suspect]
     Active Substance: BRIMONIDINE TARTRATE
     Indication: OPEN ANGLE GLAUCOMA
     Dosage: UNK UNK, TID (LE)
     Route: 061
     Dates: start: 20170309

REACTIONS (8)
  - Retinal haemorrhage [Not Recovered/Not Resolved]
  - Pupil fixed [Not Recovered/Not Resolved]
  - Punctate keratitis [Unknown]
  - Glaucoma [Recovering/Resolving]
  - Blindness [Unknown]
  - Hyphaema [Unknown]
  - Corneal oedema [Not Recovered/Not Resolved]
  - Visual acuity reduced [Recovering/Resolving]

NARRATIVE: CASE EVENT DATE: 20170302
